FAERS Safety Report 23829438 (Version 2)
Quarter: 2024Q2

REPORT INFORMATION
  Report Type: Spontaneous
  Country: US (occurrence: US)
  Receive Date: 20240508
  Receipt Date: 20240609
  Transmission Date: 20240716
  Serious: No
  Sender: FDA-Public Use
  Company Number: US-JNJFOC-20240503971

PATIENT
  Age: 79 Year
  Sex: Male

DRUGS (2)
  1. TREMFYA [Suspect]
     Active Substance: GUSELKUMAB
     Indication: Psoriatic arthropathy
     Route: 065
     Dates: start: 20240503
  2. ASPIRIN [Concomitant]
     Active Substance: ASPIRIN
     Dosage: ONCE DAILY

REACTIONS (6)
  - Gait disturbance [Unknown]
  - Pain [Unknown]
  - Skin ulcer [Unknown]
  - Skin disorder [Unknown]
  - Cough [Unknown]
  - Bedridden [Unknown]
